FAERS Safety Report 5836690-6 (Version None)
Quarter: 2008Q3

REPORT INFORMATION
  Report Type: 
  Country: None (occurrence: None)
  Receive Date: 20080807
  Receipt Date: 20080728
  Transmission Date: 20090109
  Serious: Yes (Other)
  Sender: FDA-Public Use
  Company Number: US-JNJFOC-20080707051

PATIENT
  Age: 3 Year
  Sex: Female
  Weight: 13.61 kg

DRUGS (3)
  1. TYLENOL (CAPLET) [Suspect]
     Route: 048
  2. TYLENOL (CAPLET) [Suspect]
     Indication: PYREXIA
     Route: 048
  3. ONE SOURCE [Concomitant]
     Indication: ROUTINE HEALTH MAINTENANCE

REACTIONS (4)
  - CONVULSION [None]
  - DRUG INEFFECTIVE [None]
  - PYREXIA [None]
  - VOMITING [None]
